FAERS Safety Report 14208234 (Version 2)
Quarter: 2018Q3

REPORT INFORMATION
  Report Type: Report from Study
  Country: DE (occurrence: DE)
  Receive Date: 20171121
  Receipt Date: 20180717
  Transmission Date: 20181010
  Serious: Yes (Hospitalization, Other)
  Sender: FDA-Public Use
  Company Number: DE-ROCHE-2025931

PATIENT
  Age: 78 Year
  Sex: Female
  Weight: 59 kg

DRUGS (2)
  1. BEVACIZUMAB. [Suspect]
     Active Substance: BEVACIZUMAB
     Indication: COLORECTAL CANCER
     Dosage: 16/JUN/2011, 07/JUL/2011, 23/JUL/2012, 27/AUG/2012
     Route: 042
     Dates: start: 20110328
  2. XELODA [Suspect]
     Active Substance: CAPECITABINE
     Indication: COLORECTAL CANCER
     Dosage: 2000 MG/M2 (CYCLE 2)
     Route: 048
     Dates: start: 20110328, end: 20110410

REACTIONS (13)
  - Dehydration [Recovered/Resolved]
  - Nausea [Unknown]
  - General physical health deterioration [Recovered/Resolved]
  - Vomiting [Recovered/Resolved]
  - Nervous system disorder [Unknown]
  - Diarrhoea [Unknown]
  - Diarrhoea [Recovered/Resolved]
  - Mucosal inflammation [Unknown]
  - Colitis [Unknown]
  - Pneumonia [Unknown]
  - Pain in extremity [Unknown]
  - Pyrexia [Unknown]
  - Mucosal inflammation [Recovered/Resolved]

NARRATIVE: CASE EVENT DATE: 20110418
